FAERS Safety Report 4635796-7 (Version None)
Quarter: 2005Q2

REPORT INFORMATION
  Report Type: 
  Country: None (occurrence: None)
  Receive Date: 20050414
  Receipt Date: 20050329
  Transmission Date: 20051028
  Serious: Yes (Hospitalization)
  Sender: FDA-Public Use
  Company Number: 2005UW04907

PATIENT
  Age: 40 Year
  Sex: Male

DRUGS (4)
  1. CRESTOR [Suspect]
     Dosage: 10 MG DAILY PO
     Route: 048
     Dates: start: 20050104, end: 20050318
  2. HYDROCHLOROTHIAZIDE [Concomitant]
  3. LEVOXYL [Concomitant]
  4. ZYRTEC [Concomitant]

REACTIONS (10)
  - ALANINE AMINOTRANSFERASE INCREASED [None]
  - ASPARTATE AMINOTRANSFERASE INCREASED [None]
  - BLOOD BICARBONATE INCREASED [None]
  - BLOOD CREATINE PHOSPHOKINASE INCREASED [None]
  - BLOOD OSMOLARITY DECREASED [None]
  - BLOOD URINE PRESENT [None]
  - DEHYDRATION [None]
  - MYOGLOBINURIA [None]
  - MYOSITIS [None]
  - WHITE BLOOD CELL COUNT INCREASED [None]
